FAERS Safety Report 8612528-9 (Version None)
Quarter: 2012Q3

REPORT INFORMATION
  Report Type: 
  Country: None (occurrence: None)
  Receive Date: 20120822
  Receipt Date: 20111004
  Transmission Date: 20120928
  Serious: No
  Sender: FDA-Public Use
  Company Number: US-ASTRAZENECA-2011SE59745

PATIENT
  Age: 10 Year
  Sex: Male

DRUGS (2)
  1. SYMBICORT [Suspect]
     Dosage: TWO PUFFS OD
     Route: 055
  2. SYMBICORT [Suspect]
     Dosage: TWO PUFFS BID
     Route: 055

REACTIONS (3)
  - DYSPNOEA [None]
  - INCORRECT DOSE ADMINISTERED [None]
  - ILL-DEFINED DISORDER [None]
